FAERS Safety Report 26143841 (Version 2)
Quarter: 2025Q4

REPORT INFORMATION
  Report Type: Spontaneous
  Country: GB (occurrence: GB)
  Receive Date: 20251211
  Receipt Date: 20251222
  Transmission Date: 20260118
  Serious: Yes (Hospitalization)
  Sender: TEVA
  Company Number: GB-TEVA-VS-3399918

PATIENT
  Age: 30 Year
  Sex: Female

DRUGS (2)
  1. MEPERIDINE [Suspect]
     Active Substance: MEPERIDINE
     Indication: Product used for unknown indication
     Route: 065
  2. NITROUS OXIDE\OXYGEN [Suspect]
     Active Substance: NITROUS OXIDE\OXYGEN
     Indication: Product used for unknown indication
     Route: 065

REACTIONS (4)
  - Pneumomediastinum [Not Recovered/Not Resolved]
  - Normal newborn [Unknown]
  - Maternal exposure during pregnancy [Unknown]
  - Pneumothorax [Not Recovered/Not Resolved]
